FAERS Safety Report 9104545 (Version 1)
Quarter: 2013Q1

REPORT INFORMATION
  Report Type: Spontaneous
  Country: US (occurrence: US)
  Receive Date: 20130219
  Receipt Date: 20130219
  Transmission Date: 20140127
  Serious: No
  Sender: FDA-Public Use
  Company Number: US-009507513-1302USA006968

PATIENT
  Sex: 0

DRUGS (1)
  1. CLARITIN-D [Suspect]
     Route: 048

REACTIONS (1)
  - Drug ineffective [Unknown]
